FAERS Safety Report 5833681-6 (Version None)
Quarter: 2008Q3

REPORT INFORMATION
  Report Type: 
  Country: None (occurrence: None)
  Receive Date: 20080722
  Receipt Date: 20070905
  Transmission Date: 20090109
  Serious: Yes (Hospitalization)
  Sender: FDA-Public Use
  Company Number: 2007BI018866

PATIENT
  Age: 42 Year
  Sex: Female
  Weight: 47.6277 kg

DRUGS (12)
  1. AVONEX [Suspect]
     Indication: MULTIPLE SCLEROSIS
     Dosage: 30 UG; BIW; IM
     Route: 030
     Dates: start: 20021115
  2. AVONEX [Suspect]
     Indication: MULTIPLE SCLEROSIS
     Dosage: 30 UG; BIW; IM
     Route: 030
     Dates: end: 20070901
  3. STEROIDS [Concomitant]
  4. ADDERALL 10 [Concomitant]
  5. FOSAMAX [Concomitant]
  6. FIORICET [Concomitant]
  7. TYLENOL W/ CODEINE NO. 3 [Concomitant]
  8. KLONOPIN [Concomitant]
  9. BACLOFEN [Concomitant]
  10. TOPAMAX [Concomitant]
  11. NEXIUM [Concomitant]
  12. PERCOCET [Concomitant]

REACTIONS (4)
  - BLOOD IRON DECREASED [None]
  - LEUKOPENIA [None]
  - MULTIPLE SCLEROSIS RELAPSE [None]
  - RED BLOOD CELL COUNT DECREASED [None]
